FAERS Safety Report 7576962-0 (Version None)
Quarter: 2011Q2

REPORT INFORMATION
  Report Type: 
  Country: None (occurrence: None)
  Receive Date: 20110628
  Receipt Date: 20110616
  Transmission Date: 20111010
  Serious: No
  Sender: FDA-Public Use
  Company Number: US-BAYER-2011-052117

PATIENT
  Sex: Female

DRUGS (1)
  1. MIRENA [Suspect]
     Indication: PRODUCT USED FOR UNKNOWN INDICATION
     Dosage: 20 MCG/24HR, UNK
     Dates: start: 20091201

REACTIONS (4)
  - WEIGHT INCREASED [None]
  - ABDOMINAL DISTENSION [None]
  - VAGINAL INFECTION [None]
  - ABDOMINAL PAIN [None]
